FAERS Safety Report 5870861-8 (Version None)
Quarter: 2008Q3

REPORT INFORMATION
  Report Type: 
  Country: None (occurrence: None)
  Receive Date: 20080904
  Receipt Date: 20080822
  Transmission Date: 20090109
  Serious: Yes (Hospitalization)
  Sender: FDA-Public Use
  Company Number: BR-TYCO HEALTHCARE/MALLINCKRODT-T200801401

PATIENT

DRUGS (11)
  1. MORPHINE [Suspect]
     Indication: SPINAL ANAESTHESIA
     Dosage: 4 MG, SINGLE
     Route: 050
  2. NALOXONE [Suspect]
     Indication: ACCIDENTAL OVERDOSE
     Dosage: .4 MG, SINGLE
     Route: 042
  3. NALOXONE [Suspect]
     Dosage: .1 MG/HR, UNK
     Route: 041
  4. NALOXONE [Suspect]
     Dosage: .2 MG/HR
     Route: 041
  5. FENTANYL-25 [Concomitant]
     Indication: DRUG USE FOR UNKNOWN INDICATION
     Dosage: 100 UG, SINGLE
     Route: 042
  6. MIDAZOLAM HCL [Concomitant]
     Indication: DRUG USE FOR UNKNOWN INDICATION
     Dosage: 2 MG, SINGLE
     Route: 042
  7. CEPHALOTHIN                        /00010901/ [Concomitant]
     Indication: DRUG USE FOR UNKNOWN INDICATION
     Dosage: 2 G, SINGLE
     Route: 042
  8. DEXAMETHASONE TAB [Concomitant]
     Indication: DRUG USE FOR UNKNOWN INDICATION
     Dosage: 10 MG, SINGLE
     Route: 042
  9. LOSARTAN POTASSIUM [Concomitant]
     Indication: HYPERTENSION
  10. HYPERBARIC BUPIVACAINE [Concomitant]
     Indication: SPINAL ANAESTHESIA
     Dosage: 10 MG, SINGLE
     Route: 050
  11. LIDOCAINE [Concomitant]
     Indication: DRUG USE FOR UNKNOWN INDICATION
     Dosage: 50 MG, SINGLE
     Route: 023

REACTIONS (6)
  - ACCIDENTAL OVERDOSE [None]
  - ATRIAL FIBRILLATION [None]
  - HYPERHIDROSIS [None]
  - PAIN [None]
  - URINARY RETENTION [None]
  - VOMITING [None]
